FAERS Safety Report 19272237 (Version 1)
Quarter: 2021Q2

REPORT INFORMATION
  Report Type: Spontaneous
  Country: US (occurrence: US)
  Receive Date: 20210519
  Receipt Date: 20210519
  Transmission Date: 20210717
  Serious: No
  Sender: FDA-Public Use
  Company Number: US-GLAXOSMITHKLINE-US2021AMR103167

PATIENT
  Sex: Female
  Weight: 59.86 kg

DRUGS (1)
  1. VALTREX [Suspect]
     Active Substance: VALACYCLOVIR HYDROCHLORIDE
     Indication: ORAL HERPES
     Dosage: 2 DF, BID,1 DAY, 2 PILLS IN THE MORNING AND 2 PILLS IN THE EVENING

REACTIONS (1)
  - Drug ineffective [Unknown]
